FAERS Safety Report 18789676 (Version 1)
Quarter: 2021Q1

REPORT INFORMATION
  Report Type: Spontaneous
  Country: US (occurrence: US)
  Receive Date: 20210126
  Receipt Date: 20210126
  Transmission Date: 20210419
  Serious: Yes (Hospitalization)
  Sender: FDA-Public Use
  Company Number: US-ROCHE-2756872

PATIENT
  Sex: Male

DRUGS (1)
  1. ALECENSA [Suspect]
     Active Substance: ALECTINIB HYDROCHLORIDE
     Indication: NEOPLASM MALIGNANT
     Dosage: 600 MG TWICE DAILY; ONGOING: YES
     Route: 065
     Dates: start: 20180921

REACTIONS (3)
  - Dyspnoea [Unknown]
  - Urinary tract infection [Unknown]
  - Fatigue [Unknown]
